FAERS Safety Report 7786502-9 (Version None)
Quarter: 2011Q3

REPORT INFORMATION
  Report Type: 
  Country: None (occurrence: None)
  Receive Date: 20110929
  Receipt Date: 20110923
  Transmission Date: 20111222
  Serious: Yes (Hospitalization)
  Sender: FDA-Public Use
  Company Number: US-GLAXOSMITHKLINE-A0844822A

PATIENT
  Age: 53 Year
  Sex: Male

DRUGS (7)
  1. LIPITOR [Concomitant]
  2. GLIPIZIDE [Concomitant]
  3. GLUCOPHAGE [Concomitant]
  4. NORVASC [Concomitant]
  5. METOPROLOL TARTRATE [Concomitant]
  6. AVANDIA [Suspect]
     Indication: DIABETES MELLITUS
     Dosage: 4MG PER DAY
     Route: 048
  7. PROTONIX [Concomitant]

REACTIONS (5)
  - AMNESIA [None]
  - DEPRESSION [None]
  - MYOCARDIAL INFARCTION [None]
  - VASCULAR INJURY [None]
  - OEDEMA PERIPHERAL [None]
